FAERS Safety Report 11802971 (Version 2)
Quarter: 2016Q1

REPORT INFORMATION
  Report Type: Report from Study
  Country: RU (occurrence: RU)
  Receive Date: 20151204
  Receipt Date: 20160114
  Transmission Date: 20160525
  Serious: Yes (Death)
  Sender: FDA-Public Use
  Company Number: RU-ACTAVIS-2015-25916

PATIENT
  Age: 70 Year
  Sex: Female
  Weight: 63 kg

DRUGS (5)
  1. LETROZOLE. [Suspect]
     Active Substance: LETROZOLE
     Indication: BREAST CANCER METASTATIC
     Dosage: 2.5 MG, DAILY
     Route: 048
     Dates: start: 20140602, end: 20150809
  2. ARTROZAN [Suspect]
     Active Substance: MELOXICAM
     Indication: MUSCULOSKELETAL PAIN
     Dosage: 2.5 ML, ONCE DAILY
     Route: 030
     Dates: start: 20150806, end: 20150807
  3. ZOLEDRONIC ACID [Concomitant]
     Active Substance: ZOLEDRONIC ACID
     Indication: BREAST CANCER
     Dosage: UNKNOWN
     Route: 065
     Dates: start: 20141226, end: 20150804
  4. ENAP                               /00574902/ [Concomitant]
     Indication: HYPERTENSION
     Dosage: UNKNOWN
     Route: 065
     Dates: start: 2008, end: 20150809
  5. OFTAN-TIMOLOL [Concomitant]
     Indication: GLAUCOMA
     Dosage: UNKNOWN
     Route: 065
     Dates: start: 201212

REACTIONS (3)
  - Arteriosclerosis [Fatal]
  - Cardiovascular insufficiency [Fatal]
  - Cardiac failure acute [Fatal]

NARRATIVE: CASE EVENT DATE: 20150810
